FAERS Safety Report 8804747 (Version 1)
Quarter: 2012Q4

REPORT INFORMATION
  Report Type: 
  Country: US (occurrence: US)
  Receive Date: 20120924
  Receipt Date: 20120924
  Transmission Date: 20130627
  Serious: Yes (Other)
  Sender: FDA-Public Use
  Company Number: US-JNJFOC-20110804248

PATIENT
  Sex: Male

DRUGS (7)
  1. LEVAQUIN [Suspect]
     Indication: CONJUNCTIVITIS
     Route: 048
  2. LEVAQUIN [Suspect]
     Indication: BRONCHITIS
     Route: 048
  3. LEVAQUIN [Suspect]
     Indication: SINUSITIS
     Route: 048
  4. FLONASE [Suspect]
     Indication: PRODUCT USED FOR UNKNOWN INDICATION
     Route: 045
  5. FLUTICASONE/SALMETEROL [Suspect]
     Indication: PRODUCT USED FOR UNKNOWN INDICATION
     Route: 045
  6. ADVAIR [Suspect]
     Indication: BRONCHITIS
     Route: 065
  7. ADVAIR [Suspect]
     Indication: SINUSITIS
     Route: 065

REACTIONS (7)
  - Tendon rupture [Unknown]
  - Muscle rupture [Unknown]
  - Tendon rupture [Unknown]
  - Epicondylitis [Unknown]
  - Epicondylitis [Unknown]
  - Tendonitis [Unknown]
  - Tendonitis [Unknown]
